FAERS Safety Report 8983391 (Version 2)
Quarter: 2013Q1

REPORT INFORMATION
  Report Type: Spontaneous
  Country: US (occurrence: US)
  Receive Date: 20121224
  Receipt Date: 20130114
  Transmission Date: 20140127
  Serious: Yes (Hospitalization)
  Sender: FDA-Public Use
  Company Number: US-BIOGENIDEC-2012BI062025

PATIENT
  Sex: Female

DRUGS (8)
  1. AVONEX [Suspect]
     Indication: MULTIPLE SCLEROSIS
     Route: 030
     Dates: start: 19980824, end: 20020824
  2. AVONEX [Suspect]
     Indication: MULTIPLE SCLEROSIS
     Route: 030
     Dates: start: 20121101
  3. REBIF [Concomitant]
     Indication: MULTIPLE SCLEROSIS
  4. SOLUMEDROL [Concomitant]
     Dates: start: 20121029, end: 20121030
  5. SOLUMEDROL [Concomitant]
  6. SOLUMEDROL [Concomitant]
  7. SOLUMEDROL [Concomitant]
     Dates: start: 20121101
  8. PREDNISONE [Concomitant]
     Route: 048

REACTIONS (1)
  - No adverse event [Recovered/Resolved]
